FAERS Safety Report 9740102 (Version 1)
Quarter: 2013Q4

REPORT INFORMATION
  Report Type: Spontaneous
  Country: DE (occurrence: DE)
  Receive Date: 20131209
  Receipt Date: 20131209
  Transmission Date: 20140711
  Serious: Yes (Other)
  Sender: FDA-Public Use
  Company Number: DE-GLAXOSMITHKLINE-D0082126A

PATIENT
  Age: 44 Year
  Sex: Male

DRUGS (1)
  1. SEROXAT [Suspect]
     Route: 048

REACTIONS (2)
  - Iridocyclitis [Unknown]
  - Electrocardiogram QT prolonged [Unknown]
